FAERS Safety Report 24705481 (Version 1)
Quarter: 2024Q4

REPORT INFORMATION
  Report Type: Spontaneous
  Country: CA (occurrence: CA)
  Receive Date: 20241206
  Receipt Date: 20241206
  Transmission Date: 20250114
  Serious: Yes (Hospitalization, Other)
  Sender: RANBAXY
  Company Number: CA-SUN PHARMACEUTICAL INDUSTRIES LTD-2024R1-481766

PATIENT
  Sex: Female

DRUGS (2)
  1. ROSUVASTATIN [Suspect]
     Active Substance: ROSUVASTATIN
     Indication: Haemodialysis
     Dosage: 40 MILLIGRAM, DAILY
     Route: 065
  2. METFORMIN [Suspect]
     Active Substance: METFORMIN HYDROCHLORIDE
     Indication: Haemodialysis
     Dosage: UNK
     Route: 065

REACTIONS (4)
  - Rhabdomyolysis [Unknown]
  - Acute kidney injury [Unknown]
  - Lactic acidosis [Unknown]
  - Toxicity to various agents [Unknown]
